FAERS Safety Report 19847934 (Version 2)
Quarter: 2023Q4

REPORT INFORMATION
  Report Type: Spontaneous
  Country: US (occurrence: US)
  Receive Date: 20210917
  Receipt Date: 20231026
  Transmission Date: 20240110
  Serious: Yes (Other)
  Sender: FDA-Public Use
  Company Number: US-COOPERSURGICAL, INC.-US-2021CPS002700

PATIENT
  Sex: Female

DRUGS (1)
  1. PARAGARD T 380A [Suspect]
     Active Substance: COPPER
     Indication: Contraception
     Dosage: UNK
     Route: 015
     Dates: start: 20100618, end: 20200702

REACTIONS (33)
  - Endometritis [Unknown]
  - Breast mass [Unknown]
  - Device breakage [Recovered/Resolved]
  - Foreign body in reproductive tract [Recovered/Resolved]
  - Complication of device removal [Recovered/Resolved]
  - Pelvic inflammatory disease [Recovered/Resolved]
  - Back pain [Recovered/Resolved]
  - Economic problem [Unknown]
  - Emotional distress [Unknown]
  - Anxiety [Unknown]
  - Weight decreased [Recovered/Resolved]
  - Hot flush [Recovered/Resolved]
  - Pruritus [Unknown]
  - Depressed mood [Unknown]
  - Device issue [Unknown]
  - Urinary tract infection [Unknown]
  - Anhedonia [Unknown]
  - Vulvovaginal burning sensation [Unknown]
  - Vulvovaginal discomfort [Unknown]
  - Vaginal odour [Unknown]
  - Night sweats [Unknown]
  - Menopause [Unknown]
  - Coital bleeding [Unknown]
  - Dyspareunia [Unknown]
  - Abdominal pain [Recovered/Resolved]
  - Muscle spasms [Recovered/Resolved]
  - Vaginal discharge [Unknown]
  - Intermenstrual bleeding [Recovered/Resolved]
  - Urticaria [Unknown]
  - Hypomenorrhoea [Unknown]
  - Bacterial vaginosis [Unknown]
  - Abnormal uterine bleeding [Unknown]
  - Device expulsion [Recovered/Resolved]

NARRATIVE: CASE EVENT DATE: 20130101
